FAERS Safety Report 10264251 (Version 1)
Quarter: 2014Q2

REPORT INFORMATION
  Report Type: Spontaneous
  Country: IT (occurrence: None)
  Receive Date: 20140624
  Receipt Date: 20140624
  Transmission Date: 20141212
  Serious: Yes (Other)
  Sender: FDA-Public Use
  Company Number: 2014AP003403

PATIENT
  Age: 34 Year
  Sex: Male

DRUGS (2)
  1. TOPIRAMATE (TOPIRAMATE) UNKNOWN [Suspect]
     Indication: COMPLEX PARTIAL SEIZURES
     Dosage: DURING TPM DISCONTINUATION
  2. CARBAMAZEPINE (CARBAMAZEPINE) [Concomitant]

REACTIONS (1)
  - Periodic limb movement disorder [None]
